FAERS Safety Report 8789349 (Version 1)
Quarter: 2012Q4

REPORT INFORMATION
  Report Type: Spontaneous
  Country: US (occurrence: None)
  Receive Date: 20120910
  Receipt Date: 20120910
  Transmission Date: 20130627
  Serious: Yes (Death)
  Sender: FDA-Public Use
  Company Number: None

PATIENT
  Age: 56 Year
  Sex: Female

DRUGS (1)
  1. NEXAVAR [Suspect]
     Indication: LIVER, CANCER OF
     Dates: start: 052012, end: 201209

REACTIONS (2)
  - Plasma cell myeloma [None]
  - Hepatic cancer [None]
